FAERS Safety Report 6086179-7 (Version None)
Quarter: 2009Q1

REPORT INFORMATION
  Report Type: 
  Country: None (occurrence: None)
  Receive Date: 20090220
  Receipt Date: 20090210
  Transmission Date: 20090719
  Serious: No
  Sender: FDA-Public Use
  Company Number: US-BAXTER-2008BH003957

PATIENT
  Sex: Female

DRUGS (6)
  1. HEPARIN SODIUM INJECTION [Suspect]
     Indication: DRUG USE FOR UNKNOWN INDICATION
     Route: 058
     Dates: start: 20080101
  2. HEPARIN SODIUM INJECTION [Suspect]
     Route: 058
     Dates: start: 20070101
  3. HEPARIN SODIUM INJECTION [Suspect]
     Route: 058
     Dates: start: 20030101
  4. HEPARIN SODIUM INJECTION [Suspect]
     Route: 058
     Dates: start: 20000101
  5. HEPARIN SODIUM INJECTION [Suspect]
     Route: 058
     Dates: start: 19990101
  6. HEPARIN SODIUM INJECTION [Suspect]
     Route: 058
     Dates: start: 19980101

REACTIONS (1)
  - ADVERSE EVENT [None]
